FAERS Safety Report 5798118-4 (Version None)
Quarter: 2008Q3

REPORT INFORMATION
  Report Type: 
  Country: None (occurrence: None)
  Receive Date: 20080702
  Receipt Date: 20080128
  Transmission Date: 20090109
  Serious: No
  Sender: FDA-Public Use
  Company Number: US-ASTRAZENECA-2006UW02316

PATIENT
  Age: 77 Year
  Sex: Male
  Weight: 59.9 kg

DRUGS (6)
  1. ZOLADEX [Suspect]
     Indication: PROSTATE CANCER
     Route: 058
  2. ZOLADEX [Suspect]
     Route: 058
  3. FOSAMAX PLUS D [Suspect]
  4. AVAPRO [Concomitant]
  5. FOLIC ACID [Concomitant]
  6. PREDNISONE [Concomitant]

REACTIONS (6)
  - ARTHRITIS [None]
  - FATIGUE [None]
  - MUSCULAR WEAKNESS [None]
  - MYALGIA [None]
  - OSTEOPOROSIS [None]
  - PROSTATIC SPECIFIC ANTIGEN INCREASED [None]
